FAERS Safety Report 23524353 (Version 1)
Quarter: 2024Q1

REPORT INFORMATION
  Report Type: Report from Study
  Country: US (occurrence: US)
  Receive Date: 20240214
  Receipt Date: 20240214
  Transmission Date: 20240410
  Serious: Yes (Death)
  Sender: FDA-Public Use
  Company Number: US-ABBVIE-4327799

PATIENT
  Sex: Female

DRUGS (33)
  1. VENCLEXTA [Suspect]
     Active Substance: VENETOCLAX
     Indication: Acute myeloid leukaemia
     Dosage: FORM STRENGTH: 100 MG
     Route: 048
     Dates: start: 20230206
  2. VENCLEXTA [Suspect]
     Active Substance: VENETOCLAX
     Indication: Acute myeloid leukaemia
     Dosage: DAY 3, FORM STRENGTH: 100 MG
     Route: 048
  3. VENCLEXTA [Suspect]
     Active Substance: VENETOCLAX
     Indication: Acute myeloid leukaemia
     Dosage: DAY 2, FORM STRENGTH: 100 MG
     Route: 048
  4. VENCLEXTA [Suspect]
     Active Substance: VENETOCLAX
     Indication: Acute myeloid leukaemia
     Dosage: FORM STRENGTH: 100 MG
     Route: 048
  5. VENCLEXTA [Suspect]
     Active Substance: VENETOCLAX
     Indication: Acute myeloid leukaemia
     Dosage: 10MG-50MG-100MG DSPK
     Route: 048
  6. TESSALON [Concomitant]
     Active Substance: BENZONATATE
     Indication: Cough
     Route: 048
  7. TESSALON [Concomitant]
     Active Substance: BENZONATATE
     Indication: Cough
     Dosage: TIME INTERVAL: 0.33333333 DAYS: TAKE ONE CAPSULE TO TWO CAPSULES (100-200 MG TOTAL) BY MOUTH 3 (T...
     Route: 048
  8. ELAVIL [Concomitant]
     Active Substance: AMITRIPTYLINE HYDROCHLORIDE
     Indication: Product used for unknown indication
     Dosage: FORM STRENGTH: 10 MG, TAKE ONE TABLET (10 MG TOTAL) BY MOUTH?ONE TABLET (10 MG TOTAL) NIGHTLY
     Route: 048
  9. K-DUR [Concomitant]
     Active Substance: POTASSIUM CHLORIDE
     Indication: Product used for unknown indication
     Dosage: 20 MEQ ER TABLET
     Route: 048
  10. NOVOLOG [Concomitant]
     Active Substance: INSULIN ASPART
     Indication: Product used for unknown indication
     Dosage: TIME INTERVAL: 0.33333333 DAYS: 100 UNIT/ML (3 ML) SC PEN INJECTOR
     Route: 058
  11. NOXAFIL [Concomitant]
     Active Substance: POSACONAZOLE
     Indication: Product used for unknown indication
     Dosage: FORM STRENGTH: 100 MG
     Route: 048
  12. ULTRAM [Concomitant]
     Active Substance: TRAMADOL HYDROCHLORIDE
     Indication: Pain
     Dosage: FORM STRENGTH: 50 MG
     Route: 048
  13. COZAAR [Concomitant]
     Active Substance: LOSARTAN POTASSIUM
     Indication: Product used for unknown indication
     Route: 048
  14. MAGOX [Concomitant]
     Indication: Product used for unknown indication
     Dosage: 400 MG (241.3 MG MAGNESIUM) TABLET
     Route: 048
  15. GINKGO [Concomitant]
     Active Substance: GINKGO
     Indication: Product used for unknown indication
     Dosage: FORM STRENGTH: 120 MG
     Route: 048
  16. ZYLOPRIM [Concomitant]
     Active Substance: ALLOPURINOL
     Indication: Product used for unknown indication
     Dosage: FORM STRENGTH: 100 MG
     Route: 048
  17. BIOTIN [Concomitant]
     Active Substance: BIOTIN
     Indication: Product used for unknown indication
     Dosage: 5,000 MCG TBDL, DISSOLVE ONE TABLET (5,000 MCG TOTAL)
     Route: 048
  18. TOPROL XL [Concomitant]
     Active Substance: METOPROLOL SUCCINATE
     Indication: Product used for unknown indication
     Dosage: 50 MG 24 HR TABLET, FORM STRENGTH: 75 MG
     Route: 048
  19. PRILOSEC [Concomitant]
     Active Substance: OMEPRAZOLE MAGNESIUM
     Indication: Product used for unknown indication
     Dosage: FORM STRENGTH: 40 MG
     Route: 048
  20. ZOVIRAX [Concomitant]
     Active Substance: ACYCLOVIR
     Indication: Product used for unknown indication
     Dosage: 400MG TABLET
     Route: 048
  21. GLUCOPHAGE XR [Concomitant]
     Active Substance: METFORMIN HYDROCHLORIDE
     Indication: Product used for unknown indication
     Dosage: 500 MG 24 HR TABLET
     Route: 048
  22. LEVAQUIN [Concomitant]
     Active Substance: LEVOFLOXACIN
     Indication: Product used for unknown indication
     Dosage: FORM STRENGTH: 750 MG
  23. LEVAQUIN [Concomitant]
     Active Substance: LEVOFLOXACIN
     Indication: Product used for unknown indication
     Dosage: FORM STRENGTH: 500 MG
     Route: 048
  24. DESYREL [Concomitant]
     Active Substance: TRAZODONE HYDROCHLORIDE
     Indication: Sleep disorder therapy
     Dosage: 50 MG TABLET?1-HALF TO 1 TAB (25-50 MG) NIGHTLY PRN
     Route: 048
  25. DESYREL [Concomitant]
     Active Substance: TRAZODONE HYDROCHLORIDE
     Indication: Sleep disorder therapy
     Dosage: 50 MG TABLET
     Route: 048
  26. FIRST MOUTHWASH BLM [Concomitant]
     Active Substance: ALUMINUM HYDROXIDE\DIMETHICONE 410\DIPHENHYDRAMINE HYDROCHLORIDE\LIDOCAINE HYDROCHLORIDE\MAGNESIUM H
     Indication: Product used for unknown indication
     Dosage: MAALOX-BENADRYL-LIDOCAINE VISCOUS 2% SUSPENSION
     Route: 048
  27. ZOFRAN [Concomitant]
     Active Substance: ONDANSETRON HYDROCHLORIDE
     Indication: Nausea
     Dosage: 4 MG DISINTEGRATING TABLET, ZOFRAN-ODT, FORM STRENGTH: 4 MG
     Route: 048
  28. ZYRTEC [Concomitant]
     Active Substance: CETIRIZINE HYDROCHLORIDE
     Indication: Product used for unknown indication
     Dosage: FORM STRENGTH: 10 MG
     Route: 048
  29. DACOGEN [Concomitant]
     Active Substance: DECITABINE
     Indication: Product used for unknown indication
     Dosage: FORM STRENGTH: 35 MG
     Route: 048
  30. DACOGEN [Concomitant]
     Active Substance: DECITABINE
     Indication: Product used for unknown indication
     Route: 048
  31. DACOGEN [Concomitant]
     Active Substance: DECITABINE
     Indication: Product used for unknown indication
     Route: 048
  32. DACOGEN [Concomitant]
     Active Substance: DECITABINE
     Indication: Product used for unknown indication
     Dosage: TAKE 1 TABLET BY MOUTH DAILY FOR 14 DAYS ON + 14 DAYS OFF.
     Route: 048
  33. MABEX [Concomitant]
     Indication: Product used for unknown indication

REACTIONS (4)
  - Death [Fatal]
  - Lip dry [Unknown]
  - Nausea [Unknown]
  - Off label use [Unknown]
